FAERS Safety Report 10877332 (Version 1)
Quarter: 2015Q1

REPORT INFORMATION
  Report Type: Report from Study
  Country: NL (occurrence: NL)
  Receive Date: 20150302
  Receipt Date: 20150302
  Transmission Date: 20150721
  Serious: Yes (Other)
  Sender: FDA-Public Use
  Company Number: PHHY2015NL020428

PATIENT
  Sex: Male

DRUGS (1)
  1. ZOMETA [Suspect]
     Active Substance: ZOLEDRONIC ACID
     Indication: PLASMA CELL MYELOMA
     Dosage: 4 MG/100ML, 1XPER 4 WEEKS
     Route: 042
     Dates: end: 20141229

REACTIONS (3)
  - General physical health deterioration [Unknown]
  - Malignant neoplasm progression [Unknown]
  - Plasma cell myeloma [Unknown]
